FAERS Safety Report 4522445-1 (Version None)
Quarter: 2004Q4

REPORT INFORMATION
  Report Type: 
  Country: None (occurrence: None)
  Receive Date: 20041207
  Receipt Date: 20041119
  Transmission Date: 20050328
  Serious: Yes (Hospitalization)
  Sender: FDA-Public Use
  Company Number: USA041080712

PATIENT
  Age: 66 Year
  Sex: Male

DRUGS (2)
  1. HUMULIN N [Suspect]
  2. HUMULIN R [Suspect]

REACTIONS (6)
  - BLOOD BLISTER [None]
  - DIABETIC COMPLICATION [None]
  - EXPOSURE TO TOXIC AGENT [None]
  - LOCALISED INFECTION [None]
  - SCRATCH [None]
  - SKIN IRRITATION [None]
